FAERS Safety Report 10458494 (Version 1)
Quarter: 2014Q3

REPORT INFORMATION
  Report Type: Spontaneous
  Country: GB (occurrence: None)
  Receive Date: 20140915
  Receipt Date: 20140915
  Transmission Date: 20150326
  Serious: Yes (Other)
  Sender: FDA-Public Use
  Company Number: GB-AIKEM-000705

PATIENT
  Age: 76 Year
  Sex: Female

DRUGS (1)
  1. LAMOTRIGINE (LAMOTRIGINE) [Suspect]
     Active Substance: LAMOTRIGINE
     Indication: EPILEPSY

REACTIONS (5)
  - Memory impairment [None]
  - Dyskinesia [None]
  - Obsessive-compulsive disorder [None]
  - Staring [None]
  - Unresponsive to stimuli [None]
